APPROVED DRUG PRODUCT: ETHAMIDE
Active Ingredient: ETHOXZOLAMIDE
Strength: 125MG
Dosage Form/Route: TABLET;ORAL
Application: N016144 | Product #001
Applicant: ALLERGAN PHARMACEUTICAL
Approved: Approved Prior to Jan 1, 1982 | RLD: No | RS: No | Type: DISCN